FAERS Safety Report 6786422-2 (Version None)
Quarter: 2010Q2

REPORT INFORMATION
  Report Type: 
  Country: None (occurrence: None)
  Receive Date: 20100623
  Receipt Date: 20100615
  Transmission Date: 20101027
  Serious: Yes (Other)
  Sender: FDA-Public Use
  Company Number: A0865275A

PATIENT
  Age: 76 Year
  Sex: Female

DRUGS (3)
  1. ADVAIR DISKUS 100/50 [Suspect]
     Indication: ASTHMA
     Dosage: 1PUFF PER DAY
     Route: 055
  2. PRILOSEC [Concomitant]
  3. BENADRYL [Concomitant]

REACTIONS (5)
  - ACNE [None]
  - ASTHMA [None]
  - ERYTHEMA [None]
  - PRURITUS [None]
  - RASH [None]
